FAERS Safety Report 15337009 (Version 1)
Quarter: 2018Q3

REPORT INFORMATION
  Report Type: Spontaneous
  Country: FR (occurrence: FR)
  Receive Date: 20180831
  Receipt Date: 20180831
  Transmission Date: 20181010
  Serious: Yes (Other)
  Sender: FDA-Public Use
  Company Number: FR-MERCK KGAA-2054509

PATIENT
  Age: 75 Year
  Sex: Female

DRUGS (10)
  1. NOVOTHYROX [Suspect]
     Active Substance: LEVOTHYROXINE SODIUM
     Dates: start: 20171012
  2. LEVOTHYROX 75 NF [Suspect]
     Active Substance: LEVOTHYROXINE SODIUM
     Dates: start: 20170620
  3. LEVOTHYROX 75 NF [Suspect]
     Active Substance: LEVOTHYROXINE SODIUM
     Dates: start: 20171012
  4. AVLOCARDYL [Concomitant]
     Active Substance: PROPRANOLOL HYDROCHLORIDE
  5. NOVOTHYROX [Suspect]
     Active Substance: LEVOTHYROXINE SODIUM
     Dates: start: 201708
  6. CRESTOR [Concomitant]
     Active Substance: ROSUVASTATIN CALCIUM
  7. KARDEGIC [Concomitant]
     Active Substance: ASPIRIN DL-LYSINE
  8. LEVOTHYROX 75 NF [Suspect]
     Active Substance: LEVOTHYROXINE SODIUM
     Dates: start: 201708
  9. APROVEL [Concomitant]
     Active Substance: IRBESARTAN
  10. NOVOTHYROX [Suspect]
     Active Substance: LEVOTHYROXINE SODIUM
     Indication: POST PROCEDURAL HYPOTHYROIDISM
     Dates: start: 20170620

REACTIONS (10)
  - Anxiety [None]
  - Hypothyroidism [None]
  - Headache [None]
  - Irritability [None]
  - Extrasystoles [None]
  - Hyperthyroidism [None]
  - Blood thyroid stimulating hormone abnormal [None]
  - Hot flush [None]
  - Fatigue [None]
  - Back pain [None]

NARRATIVE: CASE EVENT DATE: 2017
